FAERS Safety Report 9819036 (Version 1)
Quarter: 2014Q1

REPORT INFORMATION
  Report Type: Report from Study
  Country: US (occurrence: US)
  Receive Date: 20140115
  Receipt Date: 20140115
  Transmission Date: 20141002
  Serious: Yes (Death)
  Sender: FDA-Public Use
  Company Number: US-ROCHE-1334086

PATIENT
  Sex: Male

DRUGS (6)
  1. AVASTIN [Suspect]
     Indication: GASTRIC CANCER
     Dosage: (WITH NACL) 19/MAR/2010, 16/APR/2010
     Route: 042
  2. AVASTIN [Suspect]
     Indication: METASTASES TO LYMPH NODES
  3. DEXAMETHASONE [Concomitant]
     Dosage: 19/MAR/2010
     Route: 042
  4. ONDANSETRON [Concomitant]
     Dosage: 19/MAR/2010, 16/APR/2010
     Route: 042
  5. PACLITAXEL [Concomitant]
     Dosage: 16/APR/2010
     Route: 042
  6. NACL .9% [Concomitant]
     Dosage: 19/MAR/2010
     Route: 065

REACTIONS (2)
  - Death [Fatal]
  - Anxiety [Unknown]
